FAERS Safety Report 26189480 (Version 1)
Quarter: 2025Q4

REPORT INFORMATION
  Report Type: Report from Study
  Country: CA (occurrence: US)
  Receive Date: 20251223
  Receipt Date: 20251223
  Transmission Date: 20260117
  Serious: Yes (Other)
  Sender: TAKEDA
  Company Number: CA-TAKEDA-2025TUS116180

PATIENT
  Age: 4 Year
  Sex: Male

DRUGS (10)
  1. TEDUGLUTIDE [Suspect]
     Active Substance: TEDUGLUTIDE
     Indication: Short-bowel syndrome
     Dosage: 0.8 MILLIGRAM, QD
     Dates: start: 20251016
  2. TEDUGLUTIDE [Suspect]
     Active Substance: TEDUGLUTIDE
  3. TEDUGLUTIDE [Suspect]
     Active Substance: TEDUGLUTIDE
  4. TEDUGLUTIDE [Suspect]
     Active Substance: TEDUGLUTIDE
  5. PANTOPRAZOLE SODIUM [Concomitant]
     Active Substance: PANTOPRAZOLE SODIUM
  6. LOPERAMIDE [Concomitant]
     Active Substance: LOPERAMIDE
  7. ENOXAPARIN [Concomitant]
     Active Substance: ENOXAPARIN
  8. IRON [Concomitant]
     Active Substance: IRON
  9. TPN [Concomitant]
     Active Substance: AMINO ACIDS\DEXTROSE\ELECTROLYTES NOS\SOYBEAN OIL
     Dosage: UNK
  10. TPN [Concomitant]
     Active Substance: AMINO ACIDS\DEXTROSE\ELECTROLYTES NOS\SOYBEAN OIL
     Dosage: 1755 MILLILITER, 1/WEEK
     Dates: start: 20251020

REACTIONS (2)
  - Vascular device infection [Unknown]
  - Gastrointestinal stoma output decreased [Unknown]

NARRATIVE: CASE EVENT DATE: 20250101
